FAERS Safety Report 12498625 (Version 1)
Quarter: 2016Q2

REPORT INFORMATION
  Report Type: Spontaneous
  Country: US (occurrence: None)
  Receive Date: 20160624
  Receipt Date: 20160624
  Transmission Date: 20160815
  Serious: Yes (Hospitalization)
  Sender: FDA-Public Use
  Company Number: None

PATIENT
  Age: 66 Year
  Sex: Female
  Weight: 90.27 kg

DRUGS (15)
  1. MULTI VITAMIN [Concomitant]
     Active Substance: VITAMINS
  2. OMEGA 3 [Concomitant]
     Active Substance: OMEGA-3 FATTY ACIDS
  3. TRUBIOTICS [Concomitant]
     Active Substance: BIFIDOBACTERIUM LONGUM\LACTOBACILLUS ACIDOPHILUS
  4. SYNTHROID [Concomitant]
     Active Substance: LEVOTHYROXINE SODIUM
  5. TEA [Concomitant]
     Active Substance: TEA LEAF
  6. CINNAMON. [Concomitant]
     Active Substance: CINNAMON
  7. XARELTO [Suspect]
     Active Substance: RIVAROXABAN
     Indication: ATRIAL FIBRILLATION
     Dosage: 1 TABLET (S) IN THE MORNING TAKEN BY MOUTH
     Route: 048
     Dates: start: 20160524, end: 20160605
  8. BENICAR [Concomitant]
     Active Substance: OLMESARTAN MEDOXOMIL
  9. PRAVASTATIN [Concomitant]
     Active Substance: PRAVASTATIN\PRAVASTATIN SODIUM
  10. LUNESTA [Concomitant]
     Active Substance: ESZOPICLONE
  11. NORDITROPIN [Concomitant]
     Active Substance: SOMATROPIN
  12. HYDROCORTISONE. [Concomitant]
     Active Substance: HYDROCORTISONE
  13. MULTAQ [Concomitant]
     Active Substance: DRONEDARONE
  14. POTASSIUM [Concomitant]
     Active Substance: POTASSIUM
  15. ZANTAC [Concomitant]
     Active Substance: RANITIDINE HYDROCHLORIDE

REACTIONS (3)
  - Occult blood positive [None]
  - Faeces discoloured [None]
  - Haemoglobin decreased [None]

NARRATIVE: CASE EVENT DATE: 20160605
